FAERS Safety Report 4336194-6 (Version None)
Quarter: 2004Q2

REPORT INFORMATION
  Report Type: 
  Country: None (occurrence: None)
  Receive Date: 20040407
  Receipt Date: 20040326
  Transmission Date: 20050107
  Serious: Yes (Death, Hospitalization)
  Sender: FDA-Public Use
  Company Number: F01200400631

PATIENT
  Age: 71 Year
  Sex: Male

DRUGS (7)
  1. WARFARIN SODIUM [Suspect]
     Indication: CEREBROVASCULAR ACCIDENT PROPHYLAXIS
     Dates: start: 20031203, end: 20040320
  2. PRAZOSIN HCL [Concomitant]
  3. PANTOPRAZOLE [Concomitant]
  4. COVERSYL (PERINDOPRIL) [Concomitant]
  5. DIAFORMIN (METFORMIN HYDROCHLORIDE) [Concomitant]
  6. DIAMICRON (GLICLAZIDE) [Concomitant]
  7. ZOCOR [Concomitant]

REACTIONS (5)
  - CEREBRAL HAEMORRHAGE [None]
  - CIRCULATING ANTICOAGULANT [None]
  - CIRCULATORY COLLAPSE [None]
  - EMBOLIC STROKE [None]
  - HYPERTENSION [None]
